FAERS Safety Report 10019081 (Version 1)
Quarter: 2014Q1

REPORT INFORMATION
  Report Type: Spontaneous
  Country: AR (occurrence: AR)
  Receive Date: 20140318
  Receipt Date: 20140318
  Transmission Date: 20141002
  Serious: Yes (Death, Hospitalization)
  Sender: FDA-Public Use
  Company Number: AR-BIOMARINAP-AR-2014-102772

PATIENT
  Age: 24 Month
  Sex: Male

DRUGS (1)
  1. ALDURAZYME [Suspect]
     Indication: MUCOPOLYSACCHARIDOSIS I
     Dosage: 1000 IU, QW
     Route: 042
     Dates: start: 201212, end: 20140214

REACTIONS (9)
  - Respiratory tract infection viral [Fatal]
  - Dyspnoea [Unknown]
  - Respiratory distress [Unknown]
  - Respiratory arrest [Unknown]
  - Ear infection [Unknown]
  - Oxygen saturation decreased [Unknown]
  - General physical health deterioration [Unknown]
  - Pallor [Unknown]
  - Pyrexia [Recovered/Resolved]
